FAERS Safety Report 7267121-X (Version None)
Quarter: 2011Q1

REPORT INFORMATION
  Report Type: 
  Country: None (occurrence: None)
  Receive Date: 20110201
  Receipt Date: 20110127
  Transmission Date: 20110831
  Serious: No
  Sender: FDA-Public Use
  Company Number: US-JNJFOC-20100607216

PATIENT
  Sex: Male
  Weight: 105.24 kg

DRUGS (5)
  1. CHLORTHALIDONE AND ATENOLOL [Concomitant]
     Indication: HYPERTENSION
     Dosage: 25/12 1/2. ONE DAILY
     Route: 048
     Dates: start: 20000101
  2. SIMVASTATIN [Concomitant]
     Indication: BLOOD CHOLESTEROL INCREASED
     Route: 048
     Dates: start: 20050101
  3. PRILOSEC [Concomitant]
     Indication: GASTROOESOPHAGEAL REFLUX DISEASE
     Dosage: ONE DAILY AS NEEDED
     Route: 048
     Dates: start: 20090101
  4. PERCOCET [Concomitant]
     Indication: BREAKTHROUGH PAIN
     Dosage: AS NEEDED FOR PAIN
     Route: 048
     Dates: start: 20100301
  5. FENTANYL-100 [Suspect]
     Indication: PAIN
     Route: 062
     Dates: start: 20100501

REACTIONS (3)
  - WRONG TECHNIQUE IN DRUG USAGE PROCESS [None]
  - DRUG INEFFECTIVE [None]
  - FEELING ABNORMAL [None]
